FAERS Safety Report 18684320 (Version 1)
Quarter: 2020Q4

REPORT INFORMATION
  Report Type: Spontaneous
  Country: US (occurrence: US)
  Receive Date: 20201230
  Receipt Date: 20201230
  Transmission Date: 20210114
  Serious: No
  Sender: FDA-Public Use
  Company Number: US-PFIZER INC-2020514176

PATIENT
  Sex: Female

DRUGS (4)
  1. EUCRISA [Suspect]
     Active Substance: CRISABOROLE
     Indication: RASH
     Dosage: APPLY TO AFFECTED AREA, COUNT SIZE WAS 2 PERCENT, 2.5 GRAMS, TWO TUBES
     Route: 061
  2. TACROLIMUS. [Suspect]
     Active Substance: TACROLIMUS
     Indication: RASH
     Dosage: 2X/DAY (APPLY TO AFFECTED AREA, TOTAL COUNT SIZE 30 GRAMS)
     Route: 061
  3. DOXYCYCLINE HYCLATE. [Suspect]
     Active Substance: DOXYCYCLINE HYCLATE
     Indication: RASH
     Dosage: 100 MG, 2X/DAY (COUNT SIZE WAS 180 PILLS)
  4. METRONIDAZOLE. [Suspect]
     Active Substance: METRONIDAZOLE
     Indication: RASH
     Dosage: 2X/DAY (APPLY TO AFFECTED, COUNT SIZE ONE TUBE, 75 PERCENT, 0.45 GRAMS)
     Route: 061

REACTIONS (2)
  - Off label use [Unknown]
  - Rash [Unknown]
